FAERS Safety Report 19826143 (Version 1)
Quarter: 2021Q3

REPORT INFORMATION
  Report Type: Spontaneous
  Country: US (occurrence: US)
  Receive Date: 20210910
  Receipt Date: 20210910
  Transmission Date: 20211014
  Serious: No
  Sender: FDA-Public Use
  Company Number: None

PATIENT
  Age: 51 Year
  Sex: Male

DRUGS (1)
  1. ZONISAMIDE (ZONISAMIDE 100MG CAP) [Suspect]
     Active Substance: ZONISAMIDE
     Indication: SEIZURE
     Route: 048
     Dates: start: 20210621, end: 20210721

REACTIONS (2)
  - Recalled product administered [None]
  - Seizure [None]

NARRATIVE: CASE EVENT DATE: 20210621
